FAERS Safety Report 19184153 (Version 2)
Quarter: 2021Q2

REPORT INFORMATION
  Report Type: Spontaneous
  Country: IT (occurrence: IT)
  Receive Date: 20210427
  Receipt Date: 20210510
  Transmission Date: 20210717
  Serious: Yes (Death)
  Sender: FDA-Public Use
  Company Number: IT-PFIZER INC-2021453256

PATIENT
  Age: 60 Year
  Sex: Female
  Weight: 54 kg

DRUGS (15)
  1. DAUNOBLASTINA [Concomitant]
     Active Substance: DAUNORUBICIN
     Indication: ACUTE MYELOID LEUKAEMIA
     Dosage: 60 UG/M2
     Route: 042
     Dates: start: 20210403, end: 20210409
  2. EUTIROX [Concomitant]
     Active Substance: LEVOTHYROXINE SODIUM
     Dosage: 50 UG
  3. ACICLOVIR [Concomitant]
     Active Substance: ACYCLOVIR
     Dosage: 800 MG
     Route: 048
     Dates: start: 20210330, end: 20210417
  4. CALCIUM GLUCONATE. [Concomitant]
     Active Substance: CALCIUM GLUCONATE
     Dosage: 1 G
     Route: 042
     Dates: start: 20210406, end: 20210417
  5. PIPERACILLINA/TAZOBACTAM [Concomitant]
     Active Substance: PIPERACILLIN SODIUM\TAZOBACTAM SODIUM
     Dosage: 13.5 G
     Dates: start: 20210411, end: 20210417
  6. CRESTOR [Concomitant]
     Active Substance: ROSUVASTATIN CALCIUM
     Dosage: 5 MG
  7. CYTARABINE. [Concomitant]
     Active Substance: CYTARABINE
     Indication: ACUTE MYELOID LEUKAEMIA
     Dosage: 200 UG/M2
     Route: 042
     Dates: start: 20210403, end: 20210409
  8. NOXAFIL [Concomitant]
     Active Substance: POSACONAZOLE
     Dosage: 100 MG
     Dates: start: 20210403, end: 20210417
  9. PANTOPRAZOLE [Concomitant]
     Active Substance: PANTOPRAZOLE
     Dosage: 40 MG
     Route: 042
     Dates: start: 20210325, end: 20210417
  10. AMIKACIN SULFATE. [Concomitant]
     Active Substance: AMIKACIN SULFATE
     Dosage: 1 G
     Dates: start: 20210412, end: 20210417
  11. LOSARTAN. [Concomitant]
     Active Substance: LOSARTAN
     Dosage: 40 MG
  12. MYLOTARG [Suspect]
     Active Substance: GEMTUZUMAB OZOGAMICIN
     Indication: ACUTE MYELOID LEUKAEMIA
     Dosage: 3 MG/M2, CYCLIC
     Route: 042
     Dates: start: 20210403, end: 20210409
  13. TEICOPLANIN [Concomitant]
     Active Substance: TEICOPLANIN
     Dosage: 400 MG
     Route: 042
     Dates: start: 20210414, end: 20210417
  14. POTASSIUM CHLORIDE. [Concomitant]
     Active Substance: POTASSIUM CHLORIDE
     Indication: HYPOKALAEMIA
     Dosage: 60 MEQ
     Dates: start: 20210412, end: 20210417
  15. ALLOPURINOL. [Concomitant]
     Active Substance: ALLOPURINOL
     Dosage: 300 MG
     Dates: start: 20210330, end: 20210417

REACTIONS (1)
  - Sudden death [Fatal]

NARRATIVE: CASE EVENT DATE: 20210418
